FAERS Safety Report 14834442 (Version 1)
Quarter: 2018Q2

REPORT INFORMATION
  Report Type: Spontaneous
  Country: FR (occurrence: FR)
  Receive Date: 20180501
  Receipt Date: 20180501
  Transmission Date: 20180711
  Serious: Yes (Hospitalization)
  Sender: FDA-Public Use
  Company Number: FR-PFIZER INC-2018171274

PATIENT
  Age: 49 Year
  Sex: Female

DRUGS (3)
  1. CEFTRIAXONE /00672202/ [Suspect]
     Active Substance: CEFTRIAXONE
     Indication: ENDOCARDITIS
     Dosage: 2 G, UNK
     Route: 042
     Dates: start: 20180130, end: 20180226
  2. DOXYCYCLINE MONOHYDRATE [Suspect]
     Active Substance: DOXYCYCLINE
     Indication: ENDOCARDITIS
     Dosage: 200 MG, UNK
     Route: 048
     Dates: start: 20180130, end: 20180226
  3. GENTAMICINE /00047101/ [Suspect]
     Active Substance: GENTAMICIN
     Indication: ENDOCARDITIS
     Dosage: 3 MG/KG, UNK
     Route: 042
     Dates: start: 20180220, end: 20180226

REACTIONS (1)
  - Agranulocytosis [Recovered/Resolved]

NARRATIVE: CASE EVENT DATE: 20180226
